FAERS Safety Report 15755326 (Version 2)
Quarter: 2019Q2

REPORT INFORMATION
  Report Type: Spontaneous
  Country: PT (occurrence: PT)
  Receive Date: 20181224
  Receipt Date: 20190516
  Transmission Date: 20190711
  Serious: Yes (Other)
  Sender: FDA-Public Use
  Company Number: PT-AUROBINDO-AUR-APL-2018-060943

PATIENT

DRUGS (6)
  1. HALOPERIDOL. [Concomitant]
     Active Substance: HALOPERIDOL
     Indication: DELUSIONAL DISORDER, PERSECUTORY TYPE
     Dosage: UNK
     Route: 065
  2. OLANZAPINE. [Concomitant]
     Active Substance: OLANZAPINE
     Indication: DELUSIONAL DISORDER, PERSECUTORY TYPE
  3. VALPROIC ACID. [Suspect]
     Active Substance: VALPROIC ACID
     Indication: DELUSIONAL DISORDER, PERSECUTORY TYPE
     Dosage: UNK
     Route: 065
  4. VALPROIC ACID. [Suspect]
     Active Substance: VALPROIC ACID
     Indication: HALLUCINATION, AUDITORY
  5. HALOPERIDOL. [Concomitant]
     Active Substance: HALOPERIDOL
     Indication: HALLUCINATION, AUDITORY
  6. OLANZAPINE. [Concomitant]
     Active Substance: OLANZAPINE
     Indication: HALLUCINATION, AUDITORY
     Dosage: UNK
     Route: 065

REACTIONS (9)
  - Pain [Recovered/Resolved]
  - Necrosis [Recovered/Resolved]
  - Multiple injuries [Recovered/Resolved]
  - Lip ulceration [Recovered/Resolved]
  - Gingival ulceration [Recovered/Resolved]
  - Mouth haemorrhage [Recovered/Resolved]
  - Oral mucosal erythema [Recovered/Resolved]
  - Myalgia [Recovered/Resolved]
  - Haemorrhage [Recovered/Resolved]
